FAERS Safety Report 13205165 (Version 3)
Quarter: 2019Q3

REPORT INFORMATION
  Report Type: Spontaneous
  Country: US (occurrence: US)
  Receive Date: 20170209
  Receipt Date: 20190927
  Transmission Date: 20191004
  Serious: No
  Sender: FDA-Public Use
  Company Number: US-PFIZER INC-2017058967

PATIENT
  Age: 46 Year
  Sex: Female
  Weight: 115 kg

DRUGS (5)
  1. LYRICA [Suspect]
     Active Substance: PREGABALIN
     Indication: DIABETIC NEUROPATHY
     Dosage: 100 MG, 3X/DAY
     Route: 048
     Dates: start: 20170203
  2. LYRICA [Suspect]
     Active Substance: PREGABALIN
     Indication: FIBROMYALGIA
     Dosage: 75 MG, 3X/DAY
     Route: 048
     Dates: start: 200404
  3. LYRICA [Suspect]
     Active Substance: PREGABALIN
     Dosage: 200 MG, UNK [TAKE ONE CAPSULE BY MOUTH TIMES A DAY]
     Route: 048
  4. LYRICA [Suspect]
     Active Substance: PREGABALIN
     Dosage: UNK, 4X/DAY
  5. LYRICA [Suspect]
     Active Substance: PREGABALIN
     Dosage: 200 MG, 3X/DAY
     Route: 048

REACTIONS (4)
  - Condition aggravated [Recovering/Resolving]
  - Fibromyalgia [Recovering/Resolving]
  - Expired product administered [Unknown]
  - Diabetic neuropathy [Recovering/Resolving]

NARRATIVE: CASE EVENT DATE: 2017
